FAERS Safety Report 7896358-1 (Version None)
Quarter: 2011Q4

REPORT INFORMATION
  Report Type: 
  Country: None (occurrence: None)
  Receive Date: 20111102
  Receipt Date: 20111024
  Transmission Date: 20120403
  Serious: Yes (Other)
  Sender: FDA-Public Use
  Company Number: KAD201110-000046

PATIENT
  Age: 61 Year
  Sex: Male

DRUGS (3)
  1. RIBAVIRIN [Suspect]
     Indication: HEPATITIS C
     Dates: end: 20080101
  2. PEG-INTRON [Suspect]
     Indication: HEPATITIS C
  3. INFERGEN [Suspect]
     Indication: HEPATITIS C
     Dates: end: 20080101

REACTIONS (5)
  - ANAEMIA [None]
  - POLYNEUROPATHY [None]
  - THROMBOCYTOPENIA [None]
  - OBESITY [None]
  - TREATMENT FAILURE [None]
